FAERS Safety Report 8825033 (Version 1)
Quarter: 2012Q4

REPORT INFORMATION
  Report Type: 
  Country: BR (occurrence: BR)
  Receive Date: 20121004
  Receipt Date: 20121004
  Transmission Date: 20130627
  Serious: Yes (Death, Other)
  Sender: FDA-Public Use
  Company Number: PHHY2012BR086874

PATIENT
  Age: 58 Year
  Sex: Male

DRUGS (2)
  1. RASILEZ [Suspect]
     Indication: HYPERTENSION
     Dosage: 1 DF (300 mg), Per day
  2. DIOVAN [Suspect]
     Indication: HYPERTENSION
     Dosage: 1 DF (320 mg), Daily

REACTIONS (5)
  - Death [Fatal]
  - Renal failure chronic [Unknown]
  - Blood creatinine increased [Unknown]
  - Cardiac arrest [Unknown]
  - Blood potassium decreased [Unknown]
